FAERS Safety Report 17559037 (Version 4)
Quarter: 2022Q2

REPORT INFORMATION
  Report Type: Spontaneous
  Country: US (occurrence: US)
  Receive Date: 20200319
  Receipt Date: 20220413
  Transmission Date: 20220720
  Serious: Yes (Other)
  Sender: FDA-Public Use
  Company Number: US-CIPLA LTD.-2020US01746

PATIENT

DRUGS (15)
  1. BUPROPION [Interacting]
     Active Substance: BUPROPION
     Indication: Smoking cessation therapy
     Dosage: 150 MILLIGRAM, QD (IN THE MORNING)
     Route: 048
  2. BUPROPION [Interacting]
     Active Substance: BUPROPION
     Dosage: 150 MILLIGRAM, BID (TWICE DAILY)
     Route: 048
  3. BUPROPION [Interacting]
     Active Substance: BUPROPION
     Dosage: 150 MILLIGRAM, QD (ONCE DAILY) (DOSE REDUCED)
     Route: 048
  4. CLOZAPINE [Interacting]
     Active Substance: CLOZAPINE
     Indication: Psychotic disorder
     Dosage: 50 MG IN THE MORNING AND 500 MG AT BEDTIME, BID
     Route: 048
  5. BENZTROPINE [Concomitant]
     Active Substance: BENZTROPINE
     Indication: Drooling
     Dosage: 2 MILLIGRAM, QD (AT BEDTIME)
     Route: 048
  6. BENZTROPINE [Concomitant]
     Active Substance: BENZTROPINE
     Dosage: UNK (DOSE TAPERED)
     Route: 048
  7. GABAPENTIN [Concomitant]
     Active Substance: GABAPENTIN
     Indication: Product used for unknown indication
     Dosage: 600 MG TWICE DAILY AND 1200 MG AT BEDTIME, TID
     Route: 048
  8. PAROXETINE [Concomitant]
     Active Substance: PAROXETINE
     Indication: Affective disorder
     Dosage: 20 MG DAILY
     Route: 048
  9. PRAZOSIN [Concomitant]
     Active Substance: PRAZOSIN
     Indication: Nightmare
     Dosage: 12 MILLIGRAM, QD (AT BEDTIME)
     Route: 048
  10. PROPRANOLOL [Concomitant]
     Active Substance: PROPRANOLOL HYDROCHLORIDE
     Indication: Akathisia
     Dosage: 20 MILLIGRAM, BID (TWICE DAILY)
     Route: 048
  11. BACLOFEN [Concomitant]
     Active Substance: BACLOFEN
     Indication: Product used for unknown indication
     Dosage: UNK
  12. FISH OIL [Concomitant]
     Active Substance: FISH OIL
     Indication: Product used for unknown indication
     Dosage: UNK
  13. METHOCARBAMOL [Concomitant]
     Active Substance: METHOCARBAMOL
     Indication: Product used for unknown indication
     Dosage: UNK
  14. VITAMINS [Concomitant]
     Active Substance: VITAMINS
     Indication: Product used for unknown indication
     Dosage: UNK
  15. PANTOPRAZOLE [Concomitant]
     Active Substance: PANTOPRAZOLE
     Indication: Product used for unknown indication
     Dosage: UNK

REACTIONS (4)
  - Drug interaction [Unknown]
  - Epilepsy [Recovered/Resolved]
  - Tardive dyskinesia [Unknown]
  - Convulsive threshold lowered [Unknown]
